FAERS Safety Report 13689222 (Version 1)
Quarter: 2017Q2

REPORT INFORMATION
  Report Type: Spontaneous
  Country: US (occurrence: US)
  Receive Date: 20170625
  Receipt Date: 20170625
  Transmission Date: 20170830
  Serious: Yes (Disabling)
  Sender: FDA-Public Use
  Company Number: None

PATIENT
  Age: 56 Year
  Sex: Male
  Weight: 90 kg

DRUGS (3)
  1. MUCYNTA [Concomitant]
  2. ZOLPIDEM [Concomitant]
     Active Substance: ZOLPIDEM\ZOLPIDEM TARTRATE
  3. CLONAZEPAM. [Suspect]
     Active Substance: CLONAZEPAM
     Indication: INSOMNIA
     Dosage: ?          OTHER STRENGTH:MG;QUANTITY:1 TABLET(S);?
     Route: 048

REACTIONS (16)
  - Drug intolerance [None]
  - Abdominal discomfort [None]
  - Suicidal ideation [None]
  - Chest pain [None]
  - Hyperhidrosis [None]
  - Headache [None]
  - Pelvic pain [None]
  - Vertigo [None]
  - Chest discomfort [None]
  - Depression [None]
  - Flushing [None]
  - Head discomfort [None]
  - Vision blurred [None]
  - Tachycardia [None]
  - Tremor [None]
  - Emotional disorder [None]

NARRATIVE: CASE EVENT DATE: 20170330
